FAERS Safety Report 4578530-1 (Version None)
Quarter: 2005Q1

REPORT INFORMATION
  Report Type: 
  Country: None (occurrence: None)
  Receive Date: 20050207
  Receipt Date: 20050207
  Transmission Date: 20050727
  Serious: Yes (Other)
  Sender: FDA-Public Use
  Company Number: None

PATIENT
  Sex: Female

DRUGS (1)
  1. NAFCILLIN - BAXTER [Suspect]
     Indication: OSTEOMYELITIS
     Dosage: 2 GM Q 6 HR VIA IV
     Route: 042
     Dates: start: 20050125, end: 20050201

REACTIONS (2)
  - ERYTHEMA [None]
  - URTICARIA [None]
